FAERS Safety Report 5324151-2 (Version None)
Quarter: 2007Q2

REPORT INFORMATION
  Report Type: 
  Country: None (occurrence: None)
  Receive Date: 20070507
  Receipt Date: 20070420
  Transmission Date: 20071010
  Serious: Yes (Other)
  Sender: FDA-Public Use
  Company Number: 2007BM000047

PATIENT
  Age: 72 Year
  Sex: Female

DRUGS (2)
  1. PREDNISOLONE [Suspect]
     Indication: WEGENER'S GRANULOMATOSIS
     Dosage: SEE IMAGE
  2. ORAPRED [Suspect]

REACTIONS (8)
  - CONDITION AGGRAVATED [None]
  - EXOPHTHALMOS [None]
  - EYE ABSCESS [None]
  - GENERAL PHYSICAL HEALTH DETERIORATION [None]
  - INTRAOCULAR PRESSURE INCREASED [None]
  - PERIORBITAL ABSCESS [None]
  - VISUAL ACUITY REDUCED [None]
  - WEGENER'S GRANULOMATOSIS [None]
